FAERS Safety Report 8150936-3 (Version None)
Quarter: 2012Q1

REPORT INFORMATION
  Report Type: 
  Country: None (occurrence: None)
  Receive Date: 20120220
  Receipt Date: 20120210
  Transmission Date: 20120608
  Serious: Yes (Hospitalization)
  Sender: FDA-Public Use
  Company Number: US-ABBOTT-12P-163-0904334-00

PATIENT
  Age: 30 Year
  Sex: Female

DRUGS (1)
  1. HUMIRA [Suspect]
     Indication: CROHN'S DISEASE
     Route: 058
     Dates: start: 20111130

REACTIONS (7)
  - MUSCLE SPASMS [None]
  - DEPRESSION [None]
  - VOMITING [None]
  - CROHN'S DISEASE [None]
  - ARTHRALGIA [None]
  - ABDOMINAL PAIN [None]
  - OSTEOARTHRITIS [None]
